FAERS Safety Report 9420666 (Version 2)
Quarter: 2013Q3

REPORT INFORMATION
  Report Type: Spontaneous
  Country: JP (occurrence: JP)
  Receive Date: 20130725
  Receipt Date: 20130830
  Transmission Date: 20140515
  Serious: Yes (Death, Hospitalization)
  Sender: FDA-Public Use
  Company Number: PHHY2013JP078786

PATIENT
  Sex: 0

DRUGS (5)
  1. NEORAL [Suspect]
     Indication: STILL^S DISEASE ADULT ONSET
     Dosage: 170 MG, DAILY
     Route: 048
  2. NEORAL [Suspect]
     Indication: OFF LABEL USE
  3. NEORAL [Suspect]
     Indication: STILL^S DISEASE ADULT ONSET
     Dosage: 200 MG, DAILY
     Route: 048
  4. NEORAL [Suspect]
     Indication: OFF LABEL USE
  5. PREDNISOLONE [Suspect]
     Indication: STILL^S DISEASE ADULT ONSET
     Dosage: 20 MG, DAILY
     Route: 048

REACTIONS (13)
  - Acute respiratory distress syndrome [Fatal]
  - Hypoxia [Fatal]
  - Disseminated cryptococcosis [Fatal]
  - Pyrexia [Fatal]
  - Dyspnoea [Fatal]
  - Generalised oedema [Fatal]
  - Pain [Fatal]
  - Subcutaneous abscess [Fatal]
  - Nocardiosis [Fatal]
  - Cryptococcosis [Fatal]
  - Lung infiltration [Fatal]
  - Retroperitoneal mass [Fatal]
  - Septic shock [Unknown]
